FAERS Safety Report 22527946 (Version 1)
Quarter: 2023Q2

REPORT INFORMATION
  Report Type: Report from Study
  Country: US (occurrence: US)
  Receive Date: 20230606
  Receipt Date: 20230606
  Transmission Date: 20230722
  Serious: Yes (Hospitalization, Other)
  Sender: FDA-Public Use
  Company Number: US-ABBVIE-4288191

PATIENT
  Age: 72 Year
  Sex: Male

DRUGS (1)
  1. HUMIRA [Suspect]
     Active Substance: ADALIMUMAB
     Indication: Colitis ulcerative
     Dosage: CITRATE FREE, 40MG/0.4ML
     Route: 058
     Dates: start: 20201217

REACTIONS (7)
  - Sepsis [Not Recovered/Not Resolved]
  - Pain [Unknown]
  - Cholelithiasis [Unknown]
  - Joint hyperextension [Unknown]
  - Pain in extremity [Unknown]
  - Myalgia [Unknown]
  - Cholecystitis [Unknown]

NARRATIVE: CASE EVENT DATE: 20230101
